FAERS Safety Report 7068687-5 (Version None)
Quarter: 2010Q4

REPORT INFORMATION
  Report Type: 
  Country: None (occurrence: None)
  Receive Date: 20101028
  Receipt Date: 20101020
  Transmission Date: 20110411
  Serious: Yes (Other)
  Sender: FDA-Public Use
  Company Number: US-PFIZER INC-2010094162

PATIENT
  Sex: Female
  Weight: 77.098 kg

DRUGS (8)
  1. TOVIAZ [Suspect]
     Indication: HYPERTONIC BLADDER
     Dosage: 4 MG, 1X/DAY
     Route: 048
     Dates: start: 20100625, end: 20100730
  2. TOVIAZ [Suspect]
     Dosage: 8 MG, 1X/DAY
     Route: 048
     Dates: start: 20100701
  3. METOPROLOL [Concomitant]
     Indication: HYPERTENSION
     Dosage: UNK
  4. CRESTOR [Concomitant]
     Indication: OBSTRUCTION
     Dosage: UNK
  5. ADVAIR DISKUS 100/50 [Concomitant]
     Dosage: UNK
  6. ACIPHEX [Concomitant]
     Dosage: UNK
  7. AVALIDE [Concomitant]
     Dosage: UNK
  8. NASONEX [Concomitant]
     Dosage: UNK

REACTIONS (3)
  - CONSTIPATION [None]
  - VERTIGO [None]
  - VISION BLURRED [None]
